FAERS Safety Report 12275289 (Version 2)
Quarter: 2016Q2

REPORT INFORMATION
  Report Type: Spontaneous
  Country: US (occurrence: US)
  Receive Date: 20160415
  Receipt Date: 20160512
  Transmission Date: 20160815
  Serious: No
  Sender: FDA-Public Use
  Company Number: US-UCBSA-2015003750

PATIENT
  Age: 57 Year
  Sex: Female

DRUGS (2)
  1. NEUPRO [Suspect]
     Active Substance: ROTIGOTINE
     Dosage: USES 2 MG PATCH, BUT PRESCRIPTION WAS WRITTEN FOR 1 MG
     Dates: start: 20150616
  2. NEUPRO [Suspect]
     Active Substance: ROTIGOTINE
     Indication: RESTLESS LEGS SYNDROME
     Dosage: 3 MG, ONCE DAILY (QD)
     Route: 062
     Dates: start: 201412

REACTIONS (6)
  - Blister [Not Recovered/Not Resolved]
  - Product quality issue [Unknown]
  - Application site rash [Not Recovered/Not Resolved]
  - Drug ineffective [Unknown]
  - Drug prescribing error [Unknown]
  - Pruritus [Not Recovered/Not Resolved]

NARRATIVE: CASE EVENT DATE: 201501
